FAERS Safety Report 16250483 (Version 2)
Quarter: 2019Q3

REPORT INFORMATION
  Report Type: Spontaneous
  Country: US (occurrence: US)
  Receive Date: 20190429
  Receipt Date: 20190703
  Transmission Date: 20191004
  Serious: Yes (Hospitalization)
  Sender: FDA-Public Use
  Company Number: US-PFIZER INC-2019176414

PATIENT
  Age: 83 Year
  Sex: Female
  Weight: 108.8 kg

DRUGS (1)
  1. DETROL LA [Suspect]
     Active Substance: TOLTERODINE TARTRATE
     Indication: BLADDER DISORDER
     Dosage: 20 MG, 1X/DAY
     Dates: start: 2012

REACTIONS (3)
  - Off label use [Unknown]
  - Hypoacusis [Not Recovered/Not Resolved]
  - Bladder disorder [Not Recovered/Not Resolved]
